FAERS Safety Report 21503895 (Version 2)
Quarter: 2022Q4

REPORT INFORMATION
  Report Type: Spontaneous
  Country: BR (occurrence: BR)
  Receive Date: 20221025
  Receipt Date: 20221205
  Transmission Date: 20230113
  Serious: Yes (Other)
  Sender: FDA-Public Use
  Company Number: BR-TAKEDA-2022TUS077632

PATIENT
  Sex: Male
  Weight: 56 kg

DRUGS (2)
  1. MESALAMINE [Suspect]
     Active Substance: MESALAMINE
     Indication: Proctitis
     Dosage: 250 MILLIGRAM, QD
     Route: 065
     Dates: end: 20221016
  2. BRITENS [Concomitant]
     Indication: Glaucoma
     Dosage: UNK

REACTIONS (8)
  - Haematochezia [Not Recovered/Not Resolved]
  - Blood urine present [Not Recovered/Not Resolved]
  - Condition aggravated [Not Recovered/Not Resolved]
  - Anorectal discomfort [Not Recovered/Not Resolved]
  - Faeces discoloured [Not Recovered/Not Resolved]
  - Mucous stools [Not Recovered/Not Resolved]
  - Off label use [Unknown]
  - Diarrhoea [Not Recovered/Not Resolved]
